FAERS Safety Report 8545941-9 (Version None)
Quarter: 2012Q3

REPORT INFORMATION
  Report Type: 
  Country: None (occurrence: None)
  Receive Date: 20120727
  Receipt Date: 20111122
  Transmission Date: 20120928
  Serious: No
  Sender: FDA-Public Use
  Company Number: US-ASTRAZENECA-2011SE71199

PATIENT
  Sex: Female

DRUGS (6)
  1. SEROQUEL XR [Suspect]
     Indication: INSOMNIA
     Route: 048
  2. SEROQUEL XR [Suspect]
     Route: 048
     Dates: start: 20100601, end: 20101201
  3. SEROQUEL XR [Suspect]
     Route: 048
     Dates: start: 20100601, end: 20101201
  4. SEROQUEL XR [Suspect]
     Route: 048
     Dates: start: 20100601, end: 20101201
  5. SEROQUEL XR [Suspect]
     Indication: DEPRESSION
     Route: 048
  6. SEROQUEL XR [Suspect]
     Route: 048
     Dates: start: 20100601, end: 20101201

REACTIONS (2)
  - DRUG INEFFECTIVE FOR UNAPPROVED INDICATION [None]
  - OFF LABEL USE [None]
